FAERS Safety Report 7203809-4 (Version None)
Quarter: 2010Q4

REPORT INFORMATION
  Report Type: 
  Country: None (occurrence: None)
  Receive Date: 20101217
  Receipt Date: 20101202
  Transmission Date: 20110411
  Serious: Yes (Other)
  Sender: FDA-Public Use
  Company Number: ACO_20756_2010

PATIENT
  Age: 59 Year
  Sex: Female
  Weight: 68 kg

DRUGS (13)
  1. AMPYRA [Suspect]
     Indication: GAIT DISTURBANCE
     Dosage: 10 MG, BID, ORAL
     Route: 048
     Dates: start: 20100708
  2. ZANAFLEX [Suspect]
     Indication: PRODUCT USED FOR UNKNOWN INDICATION
     Dosage: 8 MG, QD
     Route: 048
  3. ZETIA [Concomitant]
  4. PRAVASTATIN [Concomitant]
  5. LISINOPRIL [Concomitant]
  6. ATENOLOL [Concomitant]
  7. CLONIDINE [Concomitant]
  8. SYNTHROID [Concomitant]
  9. VESICARE (SOLFENACIN SUCCINATE) [Concomitant]
  10. FERROUS SULFATE TAB [Concomitant]
  11. BETASERON [Concomitant]
  12. POTASSIUM (POTASSIUM  CHLORIDE) [Concomitant]
  13. CELEXA [Concomitant]

REACTIONS (4)
  - ABDOMINAL DISCOMFORT [None]
  - ABDOMINAL DISTENSION [None]
  - ALANINE AMINOTRANSFERASE INCREASED [None]
  - BLOOD ALKALINE PHOSPHATASE INCREASED [None]
